FAERS Safety Report 4316288-1 (Version None)
Quarter: 2004Q1

REPORT INFORMATION
  Report Type: 
  Country: None (occurrence: None)
  Receive Date: 20040311
  Receipt Date: 20040211
  Transmission Date: 20041129
  Serious: Yes (Hospitalization)
  Sender: FDA-Public Use
  Company Number: F01200400281

PATIENT
  Age: 54 Year
  Sex: Female

DRUGS (2)
  1. PLAVIX [Suspect]
     Indication: PLATELET AGGREGATION INHIBITION
     Dosage: 75 MG QD, ORAL
     Route: 048
     Dates: start: 20021125, end: 20030114
  2. TRIFLUSAL [Concomitant]

REACTIONS (2)
  - DRUG INEFFECTIVE [None]
  - PERIPHERAL ISCHAEMIA [None]
